FAERS Safety Report 16578267 (Version 12)
Quarter: 2021Q1

REPORT INFORMATION
  Report Type: Spontaneous
  Country: US (occurrence: US)
  Receive Date: 20190716
  Receipt Date: 20210311
  Transmission Date: 20210419
  Serious: Yes (Other)
  Sender: FDA-Public Use
  Company Number: US-PFIZER INC-2019303599

PATIENT
  Age: 78 Year
  Sex: Female
  Weight: 78 kg

DRUGS (3)
  1. INSULIN [Concomitant]
     Active Substance: INSULIN NOS
     Indication: DIABETES MELLITUS
     Dosage: UNK
  2. VITAMIN B12 [Concomitant]
     Active Substance: CYANOCOBALAMIN
     Indication: VITAMIN B12 ABNORMAL
     Dosage: 500 MG, 1X/DAY
  3. IBRANCE [Suspect]
     Active Substance: PALBOCICLIB
     Indication: BREAST CANCER FEMALE
     Dosage: 100 MG, CYCLIC (ONCE DAILY FOR 21 DAYS, THEN OFF FOR 1 WEEK)
     Route: 048

REACTIONS (12)
  - Gastric disorder [Unknown]
  - Diarrhoea [Unknown]
  - Tremor [Unknown]
  - Feeling cold [Unknown]
  - Chills [Unknown]
  - Blood glucose increased [Unknown]
  - Blood count abnormal [Unknown]
  - Dehydration [Unknown]
  - Blood pressure increased [Unknown]
  - Visual impairment [Unknown]
  - Asthenia [Unknown]
  - Nasopharyngitis [Not Recovered/Not Resolved]

NARRATIVE: CASE EVENT DATE: 201909
